FAERS Safety Report 24056617 (Version 2)
Quarter: 2024Q3

REPORT INFORMATION
  Report Type: Report from Study
  Country: US (occurrence: US)
  Receive Date: 20240705
  Receipt Date: 20240726
  Transmission Date: 20241017
  Serious: No
  Sender: ALEXION PHARMACEUTICALS
  Company Number: US-AstraZeneca-CH-00656001A

PATIENT
  Sex: Female

DRUGS (1)
  1. STRENSIQ [Suspect]
     Active Substance: ASFOTASE ALFA
     Indication: Product used for unknown indication
     Dosage: UNK
     Route: 065
     Dates: end: 20240621

REACTIONS (8)
  - Pain in extremity [Unknown]
  - Calcinosis [Unknown]
  - Injection site pain [Unknown]
  - Injection site swelling [Unknown]
  - Dry eye [Unknown]
  - Visual impairment [Unknown]
  - Aortic aneurysm [Unknown]
  - Drug ineffective [Unknown]
